FAERS Safety Report 7900448 (Version 4)
Quarter: 2014Q1

REPORT INFORMATION
  Report Type: Report from Study
  Country: US (occurrence: US)
  Receive Date: 20110415
  Receipt Date: 20140317
  Transmission Date: 20141002
  Serious: Yes (Death, Hospitalization)
  Sender: FDA-Public Use
  Company Number: US-BRISTOL-MYERS SQUIBB COMPANY-15653876

PATIENT
  Age: 71 Year
  Sex: Male

DRUGS (4)
  1. IPILIMUMAB [Suspect]
     Indication: MALIGNANT MELANOMA
     Dosage: ALSO TAKEN 198MG ON 21OCT2010.
     Route: 042
     Dates: start: 20101021, end: 20110325
  2. COUMADIN [Concomitant]
     Indication: DEEP VEIN THROMBOSIS
     Dates: start: 2004
  3. LORAZEPAM [Concomitant]
     Dates: start: 20110207
  4. HYDROCODONE [Concomitant]
     Dates: start: 20110101

REACTIONS (2)
  - Malignant neoplasm progression [Fatal]
  - Atrial fibrillation [Recovered/Resolved]
